FAERS Safety Report 13941476 (Version 1)
Quarter: 2017Q3

REPORT INFORMATION
  Report Type: Spontaneous
  Country: US (occurrence: US)
  Receive Date: 20170906
  Receipt Date: 20170906
  Transmission Date: 20171127
  Serious: No
  Sender: FDA-Public Use
  Company Number: US-BAYER-2017-161183

PATIENT
  Age: 59 Year
  Sex: Male
  Weight: 111.97 kg

DRUGS (2)
  1. VICODIN [Concomitant]
     Active Substance: ACETAMINOPHEN\HYDROCODONE BITARTRATE
     Indication: ARTHRALGIA
     Dosage: UNK, IN THE EVENING
     Dates: start: 20170811, end: 20170812
  2. ALEVE [Suspect]
     Active Substance: NAPROXEN SODIUM
     Indication: PAIN
     Dosage: 2 DF, Q8HR 2 EVERY 8 HOURS
     Route: 048
     Dates: start: 20170812

REACTIONS (3)
  - Incorrect dosage administered [Unknown]
  - Drug effect incomplete [Unknown]
  - Inappropriate prescribing [Unknown]

NARRATIVE: CASE EVENT DATE: 201708
